FAERS Safety Report 5085007-6 (Version None)
Quarter: 2006Q3

REPORT INFORMATION
  Report Type: 
  Country: None (occurrence: None)
  Receive Date: 20060815
  Receipt Date: 20060802
  Transmission Date: 20061208
  Serious: Yes (Other)
  Sender: FDA-Public Use
  Company Number: HQWYE762703AUG06

PATIENT
  Age: 17 Year
  Sex: Female

DRUGS (1)
  1. EFFEXOR XR [Suspect]

REACTIONS (3)
  - ANORGASMIA [None]
  - HOMICIDE [None]
  - INJURY ASPHYXIATION [None]
